FAERS Safety Report 5714873-3 (Version None)
Quarter: 2008Q2

REPORT INFORMATION
  Report Type: 
  Country: None (occurrence: None)
  Receive Date: 20080423
  Receipt Date: 20070829
  Transmission Date: 20081010
  Serious: No
  Sender: FDA-Public Use
  Company Number: US-BAYER-US-2007-026261

PATIENT
  Age: 74 Year
  Sex: Male
  Weight: 86 kg

DRUGS (3)
  1. LEUKINE [Suspect]
     Indication: MALIGNANT MELANOMA
     Route: 058
     Dates: start: 20070326, end: 20070408
  2. LEUKINE [Suspect]
     Route: 058
     Dates: start: 20070423
  3. LEUKINE [Suspect]
     Dates: start: 20070616

REACTIONS (3)
  - DRUG EFFECT DECREASED [None]
  - INJECTION SITE ERYTHEMA [None]
  - INJECTION SITE SWELLING [None]
